FAERS Safety Report 7504442-7 (Version None)
Quarter: 2011Q2

REPORT INFORMATION
  Report Type: 
  Country: None (occurrence: None)
  Receive Date: 20110525
  Receipt Date: 20110518
  Transmission Date: 20111010
  Serious: Yes (Other)
  Sender: FDA-Public Use
  Company Number: US-US-EMD SERONO, INC.-7060731

PATIENT
  Sex: Female

DRUGS (1)
  1. REBIF [Suspect]
     Indication: PRODUCT USED FOR UNKNOWN INDICATION
     Route: 058
     Dates: start: 20040115, end: 20110504

REACTIONS (6)
  - URINARY TRACT INFECTION BACTERIAL [None]
  - HERPES DERMATITIS [None]
  - HERPES OPHTHALMIC [None]
  - VIRAL RHINITIS [None]
  - ESCHERICHIA INFECTION [None]
  - INJECTION SITE PAIN [None]
